FAERS Safety Report 13398705 (Version 3)
Quarter: 2017Q3

REPORT INFORMATION
  Report Type: Spontaneous
  Country: US (occurrence: US)
  Receive Date: 20170403
  Receipt Date: 20170831
  Transmission Date: 20171127
  Serious: No
  Sender: FDA-Public Use
  Company Number: US-ASTRAZENECA-2017SE33975

PATIENT
  Age: 6 Year
  Sex: Male
  Weight: 30.8 kg

DRUGS (4)
  1. SYMBICORT [Suspect]
     Active Substance: BUDESONIDE\FORMOTEROL FUMARATE DIHYDRATE
     Indication: ASTHMA
     Dosage: 80/4.5MCG, 2 INHALATIONS EVERY 12 HOURS
     Route: 055
     Dates: start: 2016
  2. SYMBICORT [Suspect]
     Active Substance: BUDESONIDE\FORMOTEROL FUMARATE DIHYDRATE
     Indication: ASTHMA
     Dosage: 160/4.5MCG TWO INHALATIONS EVERY 12 HOURS
     Route: 055
     Dates: start: 2016
  3. ALBUTEROL. [Concomitant]
     Active Substance: ALBUTEROL
     Route: 055
  4. ALEGRA [Concomitant]

REACTIONS (6)
  - Insomnia [Unknown]
  - Cough [Unknown]
  - Circumstance or information capable of leading to medication error [Unknown]
  - Asthma [Unknown]
  - Off label use [Unknown]
  - Product quality issue [Unknown]

NARRATIVE: CASE EVENT DATE: 2016
